FAERS Safety Report 5677214-6 (Version None)
Quarter: 2008Q1

REPORT INFORMATION
  Report Type: 
  Country: None (occurrence: None)
  Receive Date: 20080321
  Receipt Date: 20080321
  Transmission Date: 20080703
  Serious: Yes (Hospitalization)
  Sender: FDA-Public Use
  Company Number: None

PATIENT
  Sex: Male
  Weight: 65 kg

DRUGS (20)
  1. BORTEZOMIB [Suspect]
     Indication: LUNG NEOPLASM MALIGNANT
     Dosage: 2.8 MG WK 1 + 2 OF 3 WKS IV BOLUS
     Route: 040
     Dates: start: 20080201, end: 20080222
  2. BEVACIZUMAB [Suspect]
     Dosage: 975 MG Q 3 WEEKS IV DRIP
     Route: 041
     Dates: start: 20080201, end: 20080222
  3. ASPIRIN [Concomitant]
  4. NEXIUM [Concomitant]
  5. COUMADIN [Concomitant]
  6. ZOFRAN [Concomitant]
  7. SPIRIVA [Concomitant]
  8. MIRACLE MOUTHWASH [Concomitant]
  9. ADVAIR DISKUS 100/50 [Concomitant]
  10. NEXIUM [Concomitant]
  11. XALATAN [Concomitant]
  12. ENALAPRIL MALEATE [Concomitant]
  13. HYDROCHLOROTHIAZIDE [Concomitant]
  14. COMPAZINE [Concomitant]
  15. DIFLUCAN [Concomitant]
  16. ACETAMINOPHEN [Concomitant]
  17. ATENALOL [Concomitant]
  18. COMPAZINE [Concomitant]
  19. FLAGYL [Concomitant]
  20. LEVAQUIN [Concomitant]

REACTIONS (2)
  - AORTIC THROMBOSIS [None]
  - PLATELET COUNT INCREASED [None]
